FAERS Safety Report 14574633 (Version 1)
Quarter: 2018Q1

REPORT INFORMATION
  Report Type: Spontaneous
  Country: US (occurrence: US)
  Receive Date: 20180224
  Receipt Date: 20180224
  Transmission Date: 20180509
  Serious: Yes (Other)
  Sender: FDA-Public Use
  Company Number: None

PATIENT
  Age: 69 Year
  Sex: Female
  Weight: 74.25 kg

DRUGS (4)
  1. ACIDOPHILUS [Concomitant]
     Active Substance: LACTOBACILLUS ACIDOPHILUS
  2. B-12/WITH C VITAMINS [Concomitant]
  3. CEFUROXIME AXETIL 500MG TAB [Suspect]
     Active Substance: CEFUROXIME AXETIL
     Indication: BRONCHITIS
     Route: 048
     Dates: start: 20180223, end: 20180224
  4. CEFUROXIME AXETIL 500MG TAB [Suspect]
     Active Substance: CEFUROXIME AXETIL
     Indication: EAR INFECTION
     Route: 048
     Dates: start: 20180223, end: 20180224

REACTIONS (3)
  - Dry mouth [None]
  - Headache [None]
  - Back pain [None]

NARRATIVE: CASE EVENT DATE: 20180224
